FAERS Safety Report 4855417-8 (Version None)
Quarter: 2005Q4

REPORT INFORMATION
  Report Type: 
  Country: None (occurrence: None)
  Receive Date: 20051125
  Receipt Date: 20050405
  Transmission Date: 20060501
  Serious: Yes (Hospitalization)
  Sender: FDA-Public Use
  Company Number: US-JNJFOC-20050302911

PATIENT
  Age: 86 Year
  Sex: Female

DRUGS (8)
  1. LEVAQUIN [Suspect]
     Indication: UPPER RESPIRATORY TRACT INFECTION
     Dosage: 500 MG
     Dates: start: 20050201, end: 20050201
  2. ZYRTEC [Concomitant]
  3. ZIAC (BISELECT) [Concomitant]
  4. ACIPHEX [Concomitant]
  5. SULINDAC [Concomitant]
  6. LEVOTHYROID (LEVOTHYROXINE) [Concomitant]
  7. TIMOLOL MALEATE [Concomitant]
  8. LEXAPRO [Concomitant]

REACTIONS (3)
  - DYSARTHRIA [None]
  - GAIT DISTURBANCE [None]
  - HALLUCINATION [None]
